FAERS Safety Report 18958567 (Version 10)
Quarter: 2021Q4

REPORT INFORMATION
  Report Type: Report from Study
  Country: NL (occurrence: NL)
  Receive Date: 20210302
  Receipt Date: 20211207
  Transmission Date: 20220303
  Serious: Yes (Death, Hospitalization, Disabling, Other)
  Sender: FDA-Public Use
  Company Number: NL-TAKEDA-2021TUS011649

PATIENT
  Age: 76 Year
  Sex: Female
  Weight: 69.841 kg

DRUGS (53)
  1. ANTIHEMOPHILIC FACTOR PORCINE, B-DOMAIN TRUNCATED RECOMBINANT [Suspect]
     Active Substance: ANTIHEMOPHILIC FACTOR PORCINE, B-DOMAIN TRUNCATED RECOMBINANT
     Indication: Haemorrhage
     Dosage: 3500 INTERNATIONAL UNIT
     Route: 042
     Dates: start: 20170512, end: 20170512
  2. ANTIHEMOPHILIC FACTOR PORCINE, B-DOMAIN TRUNCATED RECOMBINANT [Suspect]
     Active Substance: ANTIHEMOPHILIC FACTOR PORCINE, B-DOMAIN TRUNCATED RECOMBINANT
     Indication: Haemorrhage
     Dosage: 3500 INTERNATIONAL UNIT
     Route: 042
     Dates: start: 20170512, end: 20170512
  3. ANTIHEMOPHILIC FACTOR PORCINE, B-DOMAIN TRUNCATED RECOMBINANT [Suspect]
     Active Substance: ANTIHEMOPHILIC FACTOR PORCINE, B-DOMAIN TRUNCATED RECOMBINANT
     Indication: Acquired haemophilia
     Dosage: 1000 INTERNATIONAL UNIT, BID
     Route: 042
     Dates: start: 20170513, end: 20170515
  4. ANTIHEMOPHILIC FACTOR PORCINE, B-DOMAIN TRUNCATED RECOMBINANT [Suspect]
     Active Substance: ANTIHEMOPHILIC FACTOR PORCINE, B-DOMAIN TRUNCATED RECOMBINANT
     Indication: Acquired haemophilia
     Dosage: 1000 INTERNATIONAL UNIT, BID
     Route: 042
     Dates: start: 20170513, end: 20170515
  5. ANTIHEMOPHILIC FACTOR PORCINE, B-DOMAIN TRUNCATED RECOMBINANT [Suspect]
     Active Substance: ANTIHEMOPHILIC FACTOR PORCINE, B-DOMAIN TRUNCATED RECOMBINANT
     Dosage: 1500 INTERNATIONAL UNIT, QID
     Route: 042
     Dates: start: 20170516, end: 20170522
  6. ANTIHEMOPHILIC FACTOR PORCINE, B-DOMAIN TRUNCATED RECOMBINANT [Suspect]
     Active Substance: ANTIHEMOPHILIC FACTOR PORCINE, B-DOMAIN TRUNCATED RECOMBINANT
     Dosage: 1500 INTERNATIONAL UNIT, QID
     Route: 042
     Dates: start: 20170516, end: 20170522
  7. ANTIHEMOPHILIC FACTOR PORCINE, B-DOMAIN TRUNCATED RECOMBINANT [Suspect]
     Active Substance: ANTIHEMOPHILIC FACTOR PORCINE, B-DOMAIN TRUNCATED RECOMBINANT
     Dosage: 1500 INTERNATIONAL UNIT, BID
     Route: 042
     Dates: start: 20170523, end: 20170523
  8. ANTIHEMOPHILIC FACTOR PORCINE, B-DOMAIN TRUNCATED RECOMBINANT [Suspect]
     Active Substance: ANTIHEMOPHILIC FACTOR PORCINE, B-DOMAIN TRUNCATED RECOMBINANT
     Dosage: 1500 INTERNATIONAL UNIT, BID
     Route: 042
     Dates: start: 20170523, end: 20170523
  9. ANTIHEMOPHILIC FACTOR PORCINE, B-DOMAIN TRUNCATED RECOMBINANT [Suspect]
     Active Substance: ANTIHEMOPHILIC FACTOR PORCINE, B-DOMAIN TRUNCATED RECOMBINANT
     Dosage: 1500 INTERNATIONAL UNIT, BID
     Route: 042
     Dates: start: 20170518, end: 20170518
  10. ANTIHEMOPHILIC FACTOR PORCINE, B-DOMAIN TRUNCATED RECOMBINANT [Suspect]
     Active Substance: ANTIHEMOPHILIC FACTOR PORCINE, B-DOMAIN TRUNCATED RECOMBINANT
     Dosage: 1500 INTERNATIONAL UNIT, BID
     Route: 042
     Dates: start: 20170518, end: 20170518
  11. ANTIHEMOPHILIC FACTOR PORCINE, B-DOMAIN TRUNCATED RECOMBINANT [Suspect]
     Active Substance: ANTIHEMOPHILIC FACTOR PORCINE, B-DOMAIN TRUNCATED RECOMBINANT
     Dosage: UNK
     Route: 065
     Dates: start: 20170512, end: 20210930
  12. ANTIHEMOPHILIC FACTOR PORCINE, B-DOMAIN TRUNCATED RECOMBINANT [Suspect]
     Active Substance: ANTIHEMOPHILIC FACTOR PORCINE, B-DOMAIN TRUNCATED RECOMBINANT
     Dosage: UNK
     Route: 065
     Dates: start: 20170512, end: 20210930
  13. ANTIHEMOPHILIC FACTOR PORCINE, B-DOMAIN TRUNCATED RECOMBINANT [Suspect]
     Active Substance: ANTIHEMOPHILIC FACTOR PORCINE, B-DOMAIN TRUNCATED RECOMBINANT
     Dosage: 7 DOSAGE FORM
     Route: 065
     Dates: start: 20170512
  14. ANTIHEMOPHILIC FACTOR PORCINE, B-DOMAIN TRUNCATED RECOMBINANT [Suspect]
     Active Substance: ANTIHEMOPHILIC FACTOR PORCINE, B-DOMAIN TRUNCATED RECOMBINANT
     Dosage: 7 DOSAGE FORM
     Route: 065
     Dates: start: 20170512
  15. PREDNISONE [Concomitant]
     Active Substance: PREDNISONE
     Indication: Acquired haemophilia
     Dosage: UNK, QD
     Route: 065
  16. CYCLOPHOSPHAMIDE [Concomitant]
     Active Substance: CYCLOPHOSPHAMIDE
     Indication: Acquired haemophilia
     Dosage: 50 MILLIGRAM, BID
     Route: 042
     Dates: start: 20170421, end: 20170516
  17. RITUXIMAB [Concomitant]
     Active Substance: RITUXIMAB
     Indication: Acquired haemophilia
     Dosage: 650 MILLIGRAM, QD
     Route: 042
     Dates: start: 20170421, end: 20170516
  18. POTASSIUM CHLORIDE [Concomitant]
     Active Substance: POTASSIUM CHLORIDE
     Indication: Blood potassium decreased
     Dosage: 50 MILLILITER, QD
     Route: 042
     Dates: start: 20170513, end: 20170514
  19. POTASSIUM CHLORIDE [Concomitant]
     Active Substance: POTASSIUM CHLORIDE
     Dosage: 50 MILLILITER, QD
     Route: 042
     Dates: start: 20170516, end: 20170516
  20. POTASSIUM CHLORIDE [Concomitant]
     Active Substance: POTASSIUM CHLORIDE
     Dosage: 50 MILLILITER, BID
     Route: 042
     Dates: start: 20170517, end: 20170517
  21. GLUCOSE LIQUID [Concomitant]
     Indication: Electrolyte imbalance
     Dosage: 20 MILLILITER, QD
     Route: 042
     Dates: start: 20170513, end: 20170513
  22. FUROSEMIDE [Concomitant]
     Active Substance: FUROSEMIDE
     Indication: Polyuria
     Dosage: 20 MILLIGRAM, QD
     Route: 042
     Dates: start: 20170513, end: 20170516
  23. FUROSEMIDE [Concomitant]
     Active Substance: FUROSEMIDE
     Dosage: 50 MILLIGRAM, QD
     Route: 042
     Dates: start: 20170514, end: 20170514
  24. FUROSEMIDE [Concomitant]
     Active Substance: FUROSEMIDE
     Dosage: 50 MILLIGRAM, QD
     Route: 042
     Dates: start: 20170516, end: 20170516
  25. FUROSEMIDE [Concomitant]
     Active Substance: FUROSEMIDE
     Dosage: 40 MILLIGRAM, QD
     Route: 042
     Dates: start: 20170517, end: 20170517
  26. FUROSEMIDE [Concomitant]
     Active Substance: FUROSEMIDE
     Dosage: 50 MILLIGRAM, QD
     Route: 042
     Dates: start: 20170518, end: 20170519
  27. FUROSEMIDE [Concomitant]
     Active Substance: FUROSEMIDE
     Dosage: 40 MILLIGRAM, QD
     Route: 042
     Dates: start: 20170522, end: 20170522
  28. FUROSEMIDE [Concomitant]
     Active Substance: FUROSEMIDE
     Dosage: 50 MILLIGRAM, QD
     Route: 042
     Dates: start: 20170522, end: 20170522
  29. FUROSEMIDE [Concomitant]
     Active Substance: FUROSEMIDE
     Dosage: UNK
     Dates: start: 20170513, end: 20170522
  30. TOBRAMYCIN [Concomitant]
     Active Substance: TOBRAMYCIN
     Indication: Prophylaxis
     Dosage: 10 MILLILITER, QID
     Route: 050
     Dates: start: 20170516, end: 20170522
  31. TOBRAMYCIN [Concomitant]
     Active Substance: TOBRAMYCIN
     Indication: Respiratory tract inflammation
     Dosage: 1 GRAM, BID
     Route: 050
     Dates: start: 20170516, end: 20170516
  32. TOBRAMYCIN [Concomitant]
     Active Substance: TOBRAMYCIN
     Dosage: 1 GRAM, TID
     Route: 050
     Dates: start: 20170517, end: 20170519
  33. TOBRAMYCIN [Concomitant]
     Active Substance: TOBRAMYCIN
     Dosage: 1 GRAM, QID
     Route: 050
     Dates: start: 20170520, end: 20170520
  34. TOBRAMYCIN [Concomitant]
     Active Substance: TOBRAMYCIN
     Dosage: 1 GRAM, TID
     Route: 050
     Dates: start: 20170521, end: 20170522
  35. TOBRAMYCIN [Concomitant]
     Active Substance: TOBRAMYCIN
     Dosage: 1 GRAM, QD
     Route: 050
     Dates: start: 20170523, end: 20170523
  36. TOBRAMYCIN [Concomitant]
     Active Substance: TOBRAMYCIN
     Dosage: 10 MILLILITER, QD
     Route: 050
     Dates: start: 20170523, end: 20170523
  37. MAGNESIUM CHLORIDE [Concomitant]
     Active Substance: MAGNESIUM CHLORIDE
     Indication: Electrolyte imbalance
     Dosage: 50 MILLILITER, QD
     Route: 042
     Dates: start: 20170516, end: 20170516
  38. ALBUMIN HUMAN [Concomitant]
     Active Substance: ALBUMIN HUMAN
     Indication: Pre-existing disease
     Dosage: 20 GRAM, QD
     Route: 042
     Dates: start: 20170516, end: 20170516
  39. HYDROCHLOROTHIAZIDE [Concomitant]
     Active Substance: HYDROCHLOROTHIAZIDE
     Indication: Dehydration
     Dosage: 25 MILLIGRAM, QD
     Route: 048
     Dates: start: 20170517, end: 20170523
  40. COLISTIN [Concomitant]
     Active Substance: COLISTIN
     Indication: Prophylaxis
     Dosage: 10 MILLILITER, QID
     Route: 050
     Dates: start: 20170516, end: 20170522
  41. COLISTIN [Concomitant]
     Active Substance: COLISTIN
     Indication: Respiratory tract inflammation
     Dosage: 1 GRAM, BID
     Route: 050
     Dates: start: 20170516, end: 20170516
  42. COLISTIN [Concomitant]
     Active Substance: COLISTIN
     Dosage: 10 MILLILITER, QD
     Route: 050
     Dates: start: 20170523, end: 20170523
  43. COLISTIN [Concomitant]
     Active Substance: COLISTIN
     Dosage: 1 GRAM, TID
     Route: 050
     Dates: start: 20170517, end: 20170519
  44. COLISTIN [Concomitant]
     Active Substance: COLISTIN
     Dosage: 1 GRAM, QID
     Route: 050
     Dates: start: 20170520, end: 20170520
  45. COLISTIN [Concomitant]
     Active Substance: COLISTIN
     Dosage: 1 GRAM, TID
     Route: 050
     Dates: start: 20170521, end: 20170522
  46. COLISTIN [Concomitant]
     Active Substance: COLISTIN
     Dosage: 1 GRAM, QD
     Route: 050
     Dates: start: 20170523, end: 20170523
  47. AMPHOTERICIN B [Concomitant]
     Active Substance: AMPHOTERICIN B
     Indication: Prophylaxis
     Dosage: 10 MILLILITER, QID
     Route: 050
     Dates: start: 20170516, end: 20170522
  48. AMPHOTERICIN B [Concomitant]
     Active Substance: AMPHOTERICIN B
     Indication: Respiratory tract inflammation
     Dosage: 10 MILLILITER, QD
     Route: 050
     Dates: start: 20170523, end: 20170523
  49. AMPHOTERICIN B [Concomitant]
     Active Substance: AMPHOTERICIN B
     Dosage: 1 GRAM, BID
     Route: 050
     Dates: start: 20170516, end: 20170516
  50. AMPHOTERICIN B [Concomitant]
     Active Substance: AMPHOTERICIN B
     Dosage: 1 GRAM, TID
     Route: 050
     Dates: start: 20170517, end: 20170519
  51. AMPHOTERICIN B [Concomitant]
     Active Substance: AMPHOTERICIN B
     Dosage: 1 GRAM, TID
     Route: 050
     Dates: start: 20170520, end: 20170520
  52. AMPHOTERICIN B [Concomitant]
     Active Substance: AMPHOTERICIN B
     Dosage: 1 GRAM, TID
     Route: 050
     Dates: start: 20170521, end: 20170521
  53. AMPHOTERICIN B [Concomitant]
     Active Substance: AMPHOTERICIN B
     Dosage: 1 GRAM, QD
     Route: 050
     Dates: start: 20170523, end: 20170523

REACTIONS (21)
  - Respiratory failure [Fatal]
  - Renal impairment [Not Recovered/Not Resolved]
  - Impaired gastric emptying [Not Recovered/Not Resolved]
  - Dysphagia [Not Recovered/Not Resolved]
  - Fatigue [Not Recovered/Not Resolved]
  - Dyspnoea [Not Recovered/Not Resolved]
  - Tachypnoea [Not Recovered/Not Resolved]
  - Productive cough [Not Recovered/Not Resolved]
  - Hypotension [Recovered/Resolved]
  - Tremor [Not Recovered/Not Resolved]
  - Muscle contractions involuntary [Recovered/Resolved]
  - Abdominal pain [Recovered/Resolved]
  - Dysphonia [Recovered/Resolved]
  - Restlessness [Recovered/Resolved]
  - Decubitus ulcer [Not Recovered/Not Resolved]
  - Pyrexia [Not Recovered/Not Resolved]
  - Pupils unequal [Not Recovered/Not Resolved]
  - Diarrhoea [Recovered/Resolved]
  - Hyperhidrosis [Recovered/Resolved]
  - Clonus [Not Recovered/Not Resolved]
  - Hyperglycaemia [Recovered/Resolved]

NARRATIVE: CASE EVENT DATE: 20170512
